FAERS Safety Report 6744118-7 (Version None)
Quarter: 2010Q2

REPORT INFORMATION
  Report Type: 
  Country: None (occurrence: None)
  Receive Date: 20100527
  Receipt Date: 20100519
  Transmission Date: 20101027
  Serious: Yes (Other)
  Sender: FDA-Public Use
  Company Number: B0645799A

PATIENT
  Sex: Female
  Weight: 53 kg

DRUGS (5)
  1. HEPATITIS A VACCINE [Suspect]
     Indication: PROPHYLAXIS
     Route: 065
     Dates: start: 20100113, end: 20100113
  2. TETANUS VACCINE [Suspect]
     Indication: PROPHYLAXIS
     Route: 065
     Dates: start: 20100113, end: 20100113
  3. PANDEMIC VACCINE H1N1 UNSPECIFIED [Suspect]
     Indication: PROPHYLAXIS
     Dosage: 1INJ SINGLE DOSE
     Route: 065
     Dates: start: 20100129, end: 20100129
  4. MALARONE [Suspect]
     Indication: MALARIA PROPHYLAXIS
     Dosage: 1TAB PER DAY
     Route: 048
     Dates: start: 20100217, end: 20100314
  5. NICOTINE PATCHES [Concomitant]
     Route: 065

REACTIONS (3)
  - ANAEMIA [None]
  - DRUG EXPOSURE BEFORE PREGNANCY [None]
  - DRUG EXPOSURE DURING PREGNANCY [None]
